FAERS Safety Report 12879025 (Version 2)
Quarter: 2016Q4

REPORT INFORMATION
  Report Type: Spontaneous
  Country: GB (occurrence: GB)
  Receive Date: 20161024
  Receipt Date: 20161209
  Transmission Date: 20170207
  Serious: Yes (Life-Threatening, Hospitalization, Other)
  Sender: FDA-Public Use
  Company Number: PHFR2016GB008289

PATIENT
  Age: 10 Year
  Sex: Female
  Weight: 33.8 kg

DRUGS (5)
  1. COLECALCIFEROL [Concomitant]
     Active Substance: CHOLECALCIFEROL
     Indication: PRODUCT USED FOR UNKNOWN INDICATION
     Dosage: 2.5 ML, QD
     Route: 048
  2. FOLIC ACID. [Concomitant]
     Active Substance: FOLIC ACID
     Dosage: 2.5 MG, QD (EVERY MORNING)
     Route: 048
  3. EXJADE [Suspect]
     Active Substance: DEFERASIROX
     Indication: THALASSAEMIA BETA
     Dosage: 750 MG, QD
     Route: 048
     Dates: end: 20160803
  4. VITAMIN D [Concomitant]
     Active Substance: CHOLECALCIFEROL
     Indication: PRODUCT USED FOR UNKNOWN INDICATION
     Dosage: UNK
     Route: 065
  5. FOLIC ACID. [Concomitant]
     Active Substance: FOLIC ACID
     Indication: PRODUCT USED FOR UNKNOWN INDICATION
     Dosage: 5 MG, QD
     Route: 048

REACTIONS (22)
  - Confusional state [Unknown]
  - Haemoglobin decreased [Unknown]
  - Persecutory delusion [Unknown]
  - Encephalitis [Unknown]
  - Adenovirus infection [Unknown]
  - Renal tubular disorder [Unknown]
  - Hyperammonaemic encephalopathy [Recovered/Resolved]
  - Anxiety [Unknown]
  - Stress [Unknown]
  - International normalised ratio increased [Recovering/Resolving]
  - Hypophosphataemia [Unknown]
  - Sleep disorder [Unknown]
  - Metabolic acidosis [Unknown]
  - Blood bicarbonate decreased [Unknown]
  - Hallucination, visual [Unknown]
  - Serum ferritin increased [Unknown]
  - Pyrexia [Unknown]
  - Fanconi syndrome acquired [Unknown]
  - Polyuria [Unknown]
  - Hypokalaemia [Unknown]
  - Vomiting [Unknown]
  - Zinc deficiency [Unknown]

NARRATIVE: CASE EVENT DATE: 20160803
